FAERS Safety Report 8779378 (Version 1)
Quarter: 2012Q4

REPORT INFORMATION
  Report Type: Report from Study
  Country: US (occurrence: US)
  Receive Date: 20120911
  Receipt Date: 20120911
  Transmission Date: 20130627
  Serious: Yes (Hospitalization)
  Sender: FDA-Public Use
  Company Number: US-JNJFOC-20120901165

PATIENT
  Age: 61 None
  Sex: Female
  Weight: 74.39 kg

DRUGS (12)
  1. REMICADE [Suspect]
     Indication: PSORIATIC ARTHROPATHY
     Route: 042
     Dates: start: 201208
  2. REMICADE [Suspect]
     Indication: PSORIATIC ARTHROPATHY
     Route: 042
     Dates: end: 201208
  3. DURAGESIC [Suspect]
     Indication: NEUROPATHY PERIPHERAL
     Route: 062
     Dates: end: 20120711
  4. DURAGESIC [Suspect]
     Indication: ARTHRITIS
     Route: 062
     Dates: end: 20120711
  5. OXYCODONE [Suspect]
     Indication: NEUROPATHY PERIPHERAL
     Route: 065
  6. OXYCODONE [Suspect]
     Indication: ARTHRITIS
     Route: 065
  7. NEURONTIN [Concomitant]
     Indication: NEUROPATHY PERIPHERAL
     Route: 065
     Dates: start: 201207
  8. CYMBALTA [Concomitant]
     Route: 065
     Dates: start: 201207
  9. BUSPAR [Concomitant]
     Indication: ANXIETY
     Route: 065
     Dates: start: 201207
  10. TRAZODONE [Concomitant]
     Indication: SLEEP DISORDER
     Route: 065
  11. ALL OTHER THERAPEUTICS [Concomitant]
     Indication: BLOOD CHOLESTEROL
     Route: 065
  12. ANTIHYPERTENSION MEDICATION [Concomitant]
     Indication: BLOOD PRESSURE
     Route: 065

REACTIONS (7)
  - Adverse event [Recovering/Resolving]
  - Neuralgia [Unknown]
  - Blister [Recovered/Resolved]
  - Peripheral pulse decreased [Not Recovered/Not Resolved]
  - Pyrexia [Recovered/Resolved]
  - Toe amputation [Unknown]
  - Drug effect decreased [Unknown]
